FAERS Safety Report 5083245-X (Version None)
Quarter: 2006Q3

REPORT INFORMATION
  Report Type: 
  Country: None (occurrence: None)
  Receive Date: 20060818
  Receipt Date: 20060315
  Transmission Date: 20061208
  Serious: Yes (Other)
  Sender: FDA-Public Use
  Company Number: JP-AVENTIS-200610861JP

PATIENT

DRUGS (2)
  1. TAXOTERE [Suspect]
     Indication: OESOPHAGEAL CARCINOMA
     Route: 041
  2. RADIOTHERAPY [Concomitant]
     Indication: OESOPHAGEAL CARCINOMA
     Dosage: DOSE: 40GY/60GY

REACTIONS (3)
  - OESOPHAGEAL PERFORATION [None]
  - OESOPHAGITIS [None]
  - RADIATION PNEUMONITIS [None]
